FAERS Safety Report 15563673 (Version 5)
Quarter: 2019Q1

REPORT INFORMATION
  Report Type: Report from Study
  Country: FR (occurrence: FR)
  Receive Date: 20181029
  Receipt Date: 20190321
  Transmission Date: 20190417
  Serious: No
  Sender: FDA-Public Use
  Company Number: FR-GILEAD-2018-0365954

PATIENT
  Sex: Male

DRUGS (10)
  1. FUROSEMIDE. [Concomitant]
     Active Substance: FUROSEMIDE
     Indication: HYPERTENSION
     Route: 048
     Dates: start: 20160526
  2. EPOETIN ALFA [Concomitant]
     Active Substance: ERYTHROPOIETIN
     Indication: ANAEMIA
     Route: 058
     Dates: start: 20160623
  3. IDELALISIB [Suspect]
     Active Substance: IDELALISIB
     Indication: B-CELL LYMPHOMA
     Dosage: 150 MG, BID
     Route: 048
     Dates: start: 20160526, end: 20160721
  4. VALACICLOVIR [Concomitant]
     Active Substance: VALACYCLOVIR HYDROCHLORIDE
     Route: 048
     Dates: start: 20160526
  5. IDELALISIB [Suspect]
     Active Substance: IDELALISIB
     Dosage: 150 MG
     Route: 048
     Dates: start: 20161213, end: 20161226
  6. IDELALISIB [Suspect]
     Active Substance: IDELALISIB
     Dosage: 100 MG
     Route: 048
     Dates: start: 20161115, end: 20161212
  7. IDELALISIB [Suspect]
     Active Substance: IDELALISIB
     Dosage: 100 MG
     Route: 048
     Dates: start: 20160722, end: 20160818
  8. IDELALISIB [Suspect]
     Active Substance: IDELALISIB
     Dosage: 150 MG
     Route: 048
     Dates: start: 20160819, end: 20161114
  9. ENOXAPARINE SODIQUE [Concomitant]
     Active Substance: ENOXAPARIN SODIUM
     Route: 058
     Dates: start: 20160526, end: 20170106
  10. OFLOXACINE [Concomitant]
     Active Substance: OFLOXACIN
     Indication: INFECTION
     Route: 048
     Dates: start: 20160617, end: 20160701

REACTIONS (2)
  - Neutropenia [Not Recovered/Not Resolved]
  - Leukopenia [Not Recovered/Not Resolved]

NARRATIVE: CASE EVENT DATE: 20160629
